FAERS Safety Report 7202391-5 (Version None)
Quarter: 2010Q4

REPORT INFORMATION
  Report Type: 
  Country: None (occurrence: None)
  Receive Date: 20101229
  Receipt Date: 20101217
  Transmission Date: 20110411
  Serious: No
  Sender: FDA-Public Use
  Company Number: US-PFIZER INC-2010177324

PATIENT
  Age: 86 Year
  Sex: Female

DRUGS (2)
  1. ADVIL [Suspect]
     Indication: ABDOMINAL DISCOMFORT
  2. ADVIL [Suspect]
     Indication: HEADACHE

REACTIONS (1)
  - DRUG INEFFECTIVE [None]
